FAERS Safety Report 19199707 (Version 1)
Quarter: 2021Q2

REPORT INFORMATION
  Report Type: Spontaneous
  Country: US (occurrence: US)
  Receive Date: 20210429
  Receipt Date: 20210429
  Transmission Date: 20210717
  Serious: Yes (Life-Threatening, Hospitalization)
  Sender: FDA-Public Use
  Company Number: None

PATIENT
  Age: 35 Year
  Sex: Female
  Weight: 77 kg

DRUGS (1)
  1. TOFACITINIB ER [Suspect]
     Active Substance: TOFACITINIB
     Route: 048
     Dates: start: 20210330, end: 20210410

REACTIONS (4)
  - Condition aggravated [None]
  - Hypoxia [None]
  - Pulmonary embolism [None]
  - Therapy change [None]

NARRATIVE: CASE EVENT DATE: 20210406
